FAERS Safety Report 25771044 (Version 4)
Quarter: 2025Q4

REPORT INFORMATION
  Report Type: Spontaneous
  Country: EU (occurrence: EU)
  Receive Date: 20250908
  Receipt Date: 20251013
  Transmission Date: 20260118
  Serious: Yes (Other)
  Sender: SANDOZ
  Company Number: EU-002147023-NVSC2025DE138181

PATIENT
  Sex: Female
  Weight: 87 kg

DRUGS (3)
  1. ANASTROZOLE [Suspect]
     Active Substance: ANASTROZOLE
     Indication: Hormone receptor positive HER2 negative breast cancer
     Dosage: 1 MG, QD
     Route: 048
     Dates: start: 20250718
  2. RIBOCICLIB [Suspect]
     Active Substance: RIBOCICLIB
     Dosage: 200 MG, QD (TOTAL DAILY DOSE, 21 DAYS  DAILY INTAKE, 7 DAYS PAUSE)
     Route: 048
     Dates: start: 20250812
  3. RIBOCICLIB [Suspect]
     Active Substance: RIBOCICLIB
     Indication: Hormone receptor positive HER2 negative breast cancer
     Dosage: 400 MG, QD (400 MG, QD (TOTAL DAILY DOSE, 21 DAYS  DAILY INTAKE, 7 DAYS PAUSE))
     Route: 048
     Dates: start: 20250718, end: 20250811

REACTIONS (1)
  - Neutropenia [Recovered/Resolved]

NARRATIVE: CASE EVENT DATE: 20250812
